FAERS Safety Report 18489059 (Version 1)
Quarter: 2020Q4

REPORT INFORMATION
  Report Type: Spontaneous
  Country: US (occurrence: US)
  Receive Date: 20201111
  Receipt Date: 20201111
  Transmission Date: 20210114
  Serious: Yes (Hospitalization, Other)
  Sender: FDA-Public Use
  Company Number: US-RECKITT BENCKISER HEALTHCARE INT LIMITED-RB-95676-2020

PATIENT
  Age: 27 Year
  Sex: Female

DRUGS (1)
  1. PARACETAMOL [Suspect]
     Active Substance: ACETAMINOPHEN
     Indication: PAIN
     Dosage: MORE THAN 50 TABLETS IN 3-4 DAYS
     Route: 048

REACTIONS (21)
  - Acute hepatic failure [Recovering/Resolving]
  - Hepatic encephalopathy [Recovering/Resolving]
  - Acute kidney injury [Recovering/Resolving]
  - Coagulopathy [Recovering/Resolving]
  - Abdominal wall haematoma [Recovering/Resolving]
  - Renal impairment [Recovering/Resolving]
  - Toxicity to various agents [Recovering/Resolving]
  - Overdose [Recovering/Resolving]
  - Pneumomediastinum [Recovering/Resolving]
  - Hepatic function abnormal [Recovering/Resolving]
  - Thrombocytopenia [Recovering/Resolving]
  - Intracranial pressure increased [Recovering/Resolving]
  - Leukocytosis [Recovering/Resolving]
  - Hypoalbuminaemia [Recovering/Resolving]
  - Abdominal tenderness [Recovering/Resolving]
  - Lymphopenia [Recovering/Resolving]
  - Oliguria [Recovering/Resolving]
  - Brain oedema [Recovering/Resolving]
  - Tachycardia [Recovering/Resolving]
  - Gastrointestinal wall thickening [Recovering/Resolving]
  - Hepatic enzyme increased [Recovering/Resolving]
